FAERS Safety Report 23902958 (Version 3)
Quarter: 2024Q3

REPORT INFORMATION
  Report Type: Spontaneous
  Country: US (occurrence: US)
  Receive Date: 20240527
  Receipt Date: 20240723
  Transmission Date: 20241017
  Serious: Yes (Other)
  Sender: NOVARTIS
  Company Number: US-002147023-NVSC2024US110785

PATIENT
  Age: 66 Year
  Sex: Male
  Weight: 122.45 kg

DRUGS (1)
  1. PLUVICTO [Suspect]
     Active Substance: LUTETIUM LU-177 VIPIVOTIDE TETRAXETAN
     Indication: Prostate cancer metastatic
     Dosage: 200 MCI
     Route: 042
     Dates: start: 20240408

REACTIONS (2)
  - Liver function test increased [Unknown]
  - Hepatitis [Unknown]

NARRATIVE: CASE EVENT DATE: 20240507
